FAERS Safety Report 6086032-9 (Version None)
Quarter: 2009Q1

REPORT INFORMATION
  Report Type: 
  Country: None (occurrence: None)
  Receive Date: 20090220
  Receipt Date: 20090212
  Transmission Date: 20090719
  Serious: Yes (Hospitalization)
  Sender: FDA-Public Use
  Company Number: JP-ASTRAZENECA-2008AP06631

PATIENT
  Age: 3 Year
  Sex: Male
  Weight: 18 kg

DRUGS (12)
  1. PULMICORT RESPULES [Suspect]
     Indication: ASTHMA
     Route: 055
     Dates: start: 20070823
  2. ONON DRYSYRUP [Concomitant]
     Indication: ASTHMA
     Dosage: NUMBER OF SEPARATE DOSAGES UNKNOWN
     Route: 048
  3. THEO-DUR [Concomitant]
     Indication: ASTHMA
     Dosage: NUMBER OF SEPARATE DOSAGES UNKNOWN
     Route: 048
  4. MUCODYNE DS [Concomitant]
     Indication: ASTHMA
     Dosage: AS REQUIRED
     Route: 048
  5. MUCOSOLVAN [Concomitant]
     Indication: ASTHMA
     Dosage: AS REQUIRED
     Route: 048
  6. HOKUNALIN [Concomitant]
     Indication: ASTHMA
     Dosage: AS REQUIRED
     Route: 048
  7. RINDERON [Concomitant]
     Indication: ASTHMA
     Dosage: AS REQUIRED
     Route: 048
     Dates: start: 20071109, end: 20071111
  8. RINDERON [Concomitant]
     Dosage: AS REQUIRED
     Route: 048
     Dates: start: 20080308, end: 20080309
  9. LAC-B [Concomitant]
     Indication: GASTROENTERITIS
     Dosage: AS REQUIRED
     Route: 048
     Dates: start: 20071127, end: 20071201
  10. VENTOLIN [Concomitant]
     Indication: ASTHMA
     Dosage: AS REQUIRED
     Route: 048
     Dates: start: 20070825
  11. INTAL [Concomitant]
     Indication: ASTHMA
     Dosage: AS REQUIRED
     Route: 048
     Dates: start: 20070830, end: 20071020
  12. VALTREX [Concomitant]
     Indication: VARICELLA
     Dosage: AS REQUIRED
     Route: 048
     Dates: start: 20080215, end: 20080220

REACTIONS (2)
  - ASTHMA [None]
  - BRONCHITIS [None]
